FAERS Safety Report 7800018-2 (Version None)
Quarter: 2011Q4

REPORT INFORMATION
  Report Type: 
  Country: None (occurrence: None)
  Receive Date: 20111006
  Receipt Date: 20110926
  Transmission Date: 20120403
  Serious: Yes (Hospitalization)
  Sender: FDA-Public Use
  Company Number: US-BAYER-2011-068265

PATIENT
  Age: 18 Year
  Sex: Female
  Weight: 56.236 kg

DRUGS (9)
  1. YAZ [Suspect]
     Indication: CONTRACEPTION
     Dosage: UNK
     Dates: start: 20040101, end: 20100814
  2. YASMIN [Suspect]
     Indication: CONTRACEPTION
     Dosage: UNK
     Dates: start: 20070101, end: 20100101
  3. PHENERGAN HCL [Concomitant]
     Dosage: 25 MG, EVERY 6 HOURS
     Route: 048
  4. YASMIN [Suspect]
     Indication: ACNE
  5. LORTAB [Concomitant]
     Dosage: 5/500 MG, 1 EVERY 4 HOURS
     Route: 048
  6. TUMS [CALCIUM CARBONATE] [Concomitant]
  7. STOOL SOFTENER [Concomitant]
  8. YAZ [Suspect]
     Indication: ACNE
     Dosage: UNK
     Dates: start: 20070101, end: 20100814
  9. MIRALAX [Concomitant]

REACTIONS (7)
  - BILIARY DYSKINESIA [None]
  - ABDOMINAL PAIN UPPER [None]
  - GALLBLADDER DISORDER [None]
  - ABDOMINAL PAIN [None]
  - CHOLECYSTITIS [None]
  - INJURY [None]
  - GASTROINTESTINAL DISORDER [None]
